FAERS Safety Report 6125632-4 (Version None)
Quarter: 2009Q1

REPORT INFORMATION
  Report Type: 
  Country: None (occurrence: None)
  Receive Date: 20090320
  Receipt Date: 20090312
  Transmission Date: 20090719
  Serious: Yes (Death, Life-Threatening, Other)
  Sender: FDA-Public Use
  Company Number: JP-BAYER-200910764BYL

PATIENT
  Age: 44 Year
  Sex: Male
  Weight: 67 kg

DRUGS (11)
  1. FLUDARA [Suspect]
     Indication: STEM CELL TRANSPLANT
     Dosage: TOTAL DAILY DOSE: 50 MG  UNIT DOSE: 50 MG
     Route: 042
     Dates: start: 20080630, end: 20080705
  2. BUSULFAN [Concomitant]
     Indication: STEM CELL TRANSPLANT
     Dosage: AS USED: 210 MG
     Route: 065
     Dates: start: 20080704, end: 20080705
  3. CYTARABINE [Concomitant]
     Indication: STEM CELL TRANSPLANT
     Dosage: AS USED: 170 MG
     Route: 042
     Dates: start: 20080614, end: 20080626
  4. CYTARABINE [Concomitant]
     Dosage: AS USED: 3500 MG
     Route: 042
     Dates: start: 20080630, end: 20080630
  5. CYTARABINE [Concomitant]
     Dosage: AS USED: 120 MG
     Route: 042
     Dates: start: 20080613, end: 20080613
  6. ZETBULIN [Concomitant]
     Indication: STEM CELL TRANSPLANT
     Dosage: AS USED: 500 MG
     Route: 042
     Dates: start: 20080707, end: 20080708
  7. ZETBULIN [Concomitant]
     Dosage: AS USED: 130 MG
     Route: 042
     Dates: start: 20080703, end: 20080706
  8. TACROLIMUS HYDRATE [Concomitant]
     Route: 065
     Dates: start: 20080703, end: 20080811
  9. CYCLOSPORINE [Concomitant]
     Route: 065
     Dates: start: 20080812, end: 20080813
  10. CYCLOSPORINE [Concomitant]
     Route: 065
     Dates: start: 20080816, end: 20080902
  11. MYCOPHENOLATE MOFETIL [Concomitant]
     Route: 065
     Dates: start: 20080914, end: 20080927

REACTIONS (4)
  - BACTERIAL SEPSIS [None]
  - PNEUMONIA [None]
  - THROMBOTIC MICROANGIOPATHY [None]
  - VIRAL HAEMORRHAGIC CYSTITIS [None]
